FAERS Safety Report 18166349 (Version 1)
Quarter: 2020Q3

REPORT INFORMATION
  Report Type: Spontaneous
  Country: CA (occurrence: CA)
  Receive Date: 20200819
  Receipt Date: 20200819
  Transmission Date: 20201103
  Serious: Yes (Life-Threatening)
  Sender: FDA-Public Use
  Company Number: CA-ACCORD-195834

PATIENT
  Age: 16 Year
  Sex: Male
  Weight: 58 kg

DRUGS (17)
  1. NYSTATIN. [Concomitant]
     Active Substance: NYSTATIN
  2. PARACETAMOL [Concomitant]
     Active Substance: ACETAMINOPHEN
  3. DIMENHYDRINATE. [Concomitant]
     Active Substance: DIMENHYDRINATE
     Dosage: DOSAGE FORM: LIQUID INTRAVENOUS
  4. HEPARIN [Concomitant]
     Active Substance: HEPARIN SODIUM
  5. ONDANSETRON [Concomitant]
     Active Substance: ONDANSETRON
  6. CISPLATIN. [Suspect]
     Active Substance: CISPLATIN
     Indication: OSTEOSARCOMA
     Route: 042
  7. DOXORUBICIN [Suspect]
     Active Substance: DOXORUBICIN
     Indication: OSTEOSARCOMA
     Route: 042
  8. MAGNESIUM [Concomitant]
     Active Substance: MAGNESIUM
  9. MELATONIN [Concomitant]
     Active Substance: MELATONIN
  10. LORAZEPAM. [Concomitant]
     Active Substance: LORAZEPAM
  11. FAMOTIDINE. [Concomitant]
     Active Substance: FAMOTIDINE
  12. FILGRASTIM [Concomitant]
     Active Substance: FILGRASTIM
  13. SULFAMETHOXAZOLE/TRIMETHOPRIM [Concomitant]
     Active Substance: SULFAMETHOXAZOLE\TRIMETHOPRIM
  14. MACROGOL [Concomitant]
     Active Substance: POLYETHYLENE GLYCOLS
  15. SENNOSIDE A+B [Concomitant]
     Active Substance: SENNOSIDES A AND B
  16. VALACYCLOVIR [Concomitant]
     Active Substance: VALACYCLOVIR HYDROCHLORIDE
  17. VANCOMYCIN [Concomitant]
     Active Substance: VANCOMYCIN

REACTIONS (7)
  - Nausea [Unknown]
  - Thrombocytopenia [Unknown]
  - Vomiting [Unknown]
  - Dehydration [Unknown]
  - Pancytopenia [Unknown]
  - Platelet transfusion [Unknown]
  - Off label use [Unknown]
